FAERS Safety Report 4962613-8 (Version None)
Quarter: 2006Q1

REPORT INFORMATION
  Report Type: 
  Country: None (occurrence: None)
  Receive Date: 20060201
  Receipt Date: 20051108
  Transmission Date: 20060701
  Serious: No
  Sender: FDA-Public Use
  Company Number: 2005PV004121

PATIENT
  Age: 67 Year
  Sex: Female

DRUGS (10)
  1. BYETTA [Suspect]
     Indication: DIABETES MELLITUS NON-INSULIN-DEPENDENT
     Dosage: 5 MCG;BID;SC
     Route: 058
     Dates: start: 20050901, end: 20051110
  2. METFORMIN [Concomitant]
  3. GLUCOVANCE [Concomitant]
  4. ACTOS [Concomitant]
  5. CAPOTEN [Concomitant]
  6. LIPITOR [Concomitant]
  7. WELLBUTRIN [Concomitant]
  8. METOPROLOL TARTRATE [Concomitant]
  9. ECOTRIN [Concomitant]
  10. ALLEGRA [Concomitant]

REACTIONS (2)
  - ALANINE AMINOTRANSFERASE INCREASED [None]
  - ASPARTATE AMINOTRANSFERASE INCREASED [None]
